FAERS Safety Report 7985317-6 (Version None)
Quarter: 2011Q4

REPORT INFORMATION
  Report Type: 
  Country: None (occurrence: None)
  Receive Date: 20111216
  Receipt Date: 20111216
  Transmission Date: 20120403
  Serious: Yes (Life-Threatening)
  Sender: FDA-Public Use
  Company Number: IT-SANOFI-AVENTIS-2011SA078415

PATIENT
  Age: 76 Year
  Sex: Male

DRUGS (7)
  1. RIFADIN [Suspect]
     Indication: ENDOCARDITIS
     Route: 042
     Dates: start: 20111008, end: 20111102
  2. ROCEPHIN [Suspect]
     Indication: ENDOCARDITIS
     Route: 042
     Dates: start: 20111102, end: 20111104
  3. DAPTOMYCIN [Suspect]
     Indication: ENDOCARDITIS
     Route: 041
     Dates: start: 20111102, end: 20111105
  4. VANCOMYCIN HYCHLORIDE [Suspect]
     Indication: ENDOCARDITIS
     Route: 042
     Dates: start: 20111007, end: 20111102
  5. PANTOPRAZOLE SODIUM [Suspect]
     Indication: PROPHYLAXIS AGAINST GASTROINTESTINAL ULCER
     Route: 048
     Dates: start: 20090101, end: 20111107
  6. GENTAMICIN SULFATE [Suspect]
     Indication: ENDOCARDITIS
     Route: 042
     Dates: start: 20111007, end: 20111020
  7. GENTAMICIN SULFATE [Suspect]
     Dates: start: 20111106, end: 20111108

REACTIONS (1)
  - DRUG RASH WITH EOSINOPHILIA AND SYSTEMIC SYMPTOMS [None]
